FAERS Safety Report 14280874 (Version 5)
Quarter: 2022Q3

REPORT INFORMATION
  Report Type: Spontaneous
  Country: GB (occurrence: GB)
  Receive Date: 20171213
  Receipt Date: 20220802
  Transmission Date: 20221026
  Serious: Yes (Other)
  Sender: FDA-Public Use
  Company Number: None

PATIENT
  Age: 61 Year
  Sex: Female
  Weight: 63.5 kg

DRUGS (5)
  1. LANSOPRAZOLE [Suspect]
     Active Substance: LANSOPRAZOLE
     Indication: Lower respiratory tract infection
     Dosage: UNK
     Route: 048
     Dates: start: 20171005, end: 20171102
  2. LANSOPRAZOLE [Suspect]
     Active Substance: LANSOPRAZOLE
     Indication: Gastrooesophageal reflux disease
  3. AMOXICILLIN TRIHYDRATE [Suspect]
     Active Substance: AMOXICILLIN
     Indication: Productive cough
     Dosage: NOT KNOWN BOXES THROWN AWAY
     Route: 048
     Dates: start: 20171027, end: 20171102
  4. AMLODIPINE [Suspect]
     Active Substance: AMLODIPINE BESYLATE
     Indication: Hypertension
     Dosage: UNK
     Route: 065
  5. NAPROXEN [Suspect]
     Active Substance: NAPROXEN
     Indication: Bursitis
     Dosage: UNK
     Route: 048
     Dates: start: 20171005, end: 20171102

REACTIONS (11)
  - Loss of consciousness [Unknown]
  - Sleep disorder [Recovered/Resolved]
  - Nightmare [Recovered/Resolved]
  - Diarrhoea [Not Recovered/Not Resolved]
  - Mouth ulceration [Unknown]
  - Poor quality sleep [Unknown]
  - Depression [Unknown]
  - Dehydration [Unknown]
  - Product use in unapproved indication [Unknown]
  - Off label use [Unknown]
  - Intentional product misuse [Unknown]

NARRATIVE: CASE EVENT DATE: 20171005
